FAERS Safety Report 7222087-3 (Version None)
Quarter: 2011Q1

REPORT INFORMATION
  Report Type: 
  Country: None (occurrence: None)
  Receive Date: 20110112
  Receipt Date: 20101231
  Transmission Date: 20110831
  Serious: Yes (Hospitalization, Disabling)
  Sender: FDA-Public Use
  Company Number: DE-ROCHE-752176

PATIENT
  Sex: Male
  Weight: 82 kg

DRUGS (2)
  1. RIBAVIRIN [Suspect]
     Route: 048
     Dates: start: 20100524, end: 20101105
  2. PEGINTERFERON ALFA-2A [Suspect]
     Route: 058
     Dates: start: 20100524, end: 20101101

REACTIONS (1)
  - SEMINOMA [None]
